FAERS Safety Report 18392554 (Version 1)
Quarter: 2020Q4

REPORT INFORMATION
  Report Type: Spontaneous
  Country: US (occurrence: US)
  Receive Date: 20201016
  Receipt Date: 20201016
  Transmission Date: 20210114
  Serious: No
  Sender: FDA-Public Use
  Company Number: None

PATIENT
  Age: 40 Year
  Sex: Female
  Weight: 59.4 kg

DRUGS (5)
  1. IBUPROFEN. [Concomitant]
     Active Substance: IBUPROFEN
  2. BIOTIN [Concomitant]
     Active Substance: BIOTIN
  3. CLOBETASOL [Suspect]
     Active Substance: CLOBETASOL
     Indication: SWELLING
     Dosage: ?          QUANTITY:4 DROP(S);?
     Route: 061
  4. MULTIVITAMIN [Concomitant]
     Active Substance: VITAMINS
  5. FLUOCINONIDE. [Suspect]
     Active Substance: FLUOCINONIDE
     Indication: INFLAMMATION
     Dosage: ?          QUANTITY:4 DROP(S);?
     Route: 061

REACTIONS (3)
  - Product container issue [None]
  - Headache [None]
  - Skin swelling [None]

NARRATIVE: CASE EVENT DATE: 20200929
